FAERS Safety Report 6326520-0 (Version None)
Quarter: 2009Q3

REPORT INFORMATION
  Report Type: 
  Country: None (occurrence: None)
  Receive Date: 20090821
  Receipt Date: 20090806
  Transmission Date: 20100115
  Serious: Yes (Other)
  Sender: FDA-Public Use
  Company Number: 001526

PATIENT
  Age: 64 Year
  Sex: Female

DRUGS (5)
  1. ALPRAZOLAM [Suspect]
     Indication: CEREBROVASCULAR ACCIDENT
  2. TICLOPIDINE HYDROCHLORIDE [Suspect]
     Indication: CEREBROVASCULAR ACCIDENT
  3. PIRACETAM (PIRACETAM) [Suspect]
     Indication: CEREBROVASCULAR ACCIDENT
  4. VINCAMINE (VINCAMINE) [Suspect]
     Indication: CEREBROVASCULAR ACCIDENT
  5. ENALAPRIL MALEATE [Concomitant]

REACTIONS (6)
  - ALANINE AMINOTRANSFERASE INCREASED [None]
  - ASPARTATE AMINOTRANSFERASE INCREASED [None]
  - DRUG RASH WITH EOSINOPHILIA AND SYSTEMIC SYMPTOMS [None]
  - EOSINOPHILIA [None]
  - HEPATIC FUNCTION ABNORMAL [None]
  - LEUKOCYTOSIS [None]
